FAERS Safety Report 6218296-2 (Version None)
Quarter: 2009Q2

REPORT INFORMATION
  Report Type: 
  Country: None (occurrence: None)
  Receive Date: 20090604
  Receipt Date: 20090604
  Transmission Date: 20091009
  Serious: Yes (Other)
  Sender: FDA-Public Use
  Company Number: None

PATIENT
  Sex: Female

DRUGS (1)
  1. OPTIRAY 320 [Suspect]
     Dosage: 125ML
     Dates: start: 20090511, end: 20090511

REACTIONS (3)
  - COUGH [None]
  - DYSPHAGIA [None]
  - THROAT IRRITATION [None]
